FAERS Safety Report 23969706 (Version 1)
Quarter: 2024Q2

REPORT INFORMATION
  Report Type: Spontaneous
  Country: US (occurrence: US)
  Receive Date: 20240613
  Receipt Date: 20240613
  Transmission Date: 20240716
  Serious: Yes (Hospitalization)
  Sender: FDA-Public Use
  Company Number: US-STRIDES ARCOLAB LIMITED-2024SP000529

PATIENT
  Age: 90 Year
  Sex: Male

DRUGS (8)
  1. CINACALCET [Suspect]
     Active Substance: CINACALCET
     Indication: Hypercalcaemia
     Dosage: 30 MILLIGRAM DAILY
     Route: 048
  2. CINACALCET [Suspect]
     Active Substance: CINACALCET
     Dosage: UNK (ADDED WHEN HYPERCALCAEMIA FURTHER WORSENED ON DAY 38)
     Route: 065
  3. CINACALCET [Suspect]
     Active Substance: CINACALCET
     Dosage: 60 MILLIGRAM BID
     Route: 048
  4. CALCITONIN [Suspect]
     Active Substance: CALCITONIN
     Indication: Hypercalcaemia
     Dosage: UNK
     Route: 030
  5. CALCITONIN [Suspect]
     Active Substance: CALCITONIN
     Dosage: UNK, EVERY 6 HRS (INCREASED UP TO 6MG EVERY 6H)
     Route: 030
  6. ZOLEDRONIC ACID [Suspect]
     Active Substance: ZOLEDRONIC ACID
     Indication: Hypercalcaemia
     Dosage: 4 MILLIGRAM
     Route: 065
  7. FUROSEMIDE [Concomitant]
     Active Substance: FUROSEMIDE
     Indication: Hypercalcaemia
     Dosage: UNK, PRN, IV FLUID RESUSCITATION
     Route: 042
  8. ATROPINE [Concomitant]
     Active Substance: ATROPINE\ATROPINE SULFATE
     Indication: Atrioventricular block complete
     Dosage: UNK
     Route: 065

REACTIONS (2)
  - Drug resistance [Unknown]
  - Condition aggravated [Recovered/Resolved]
